FAERS Safety Report 18150334 (Version 1)
Quarter: 2020Q3

REPORT INFORMATION
  Report Type: Other
  Country: CN (occurrence: CN)
  Receive Date: 20200814
  Receipt Date: 20200814
  Transmission Date: 20201103
  Serious: Yes (Other)
  Sender: FDA-Public Use
  Company Number: CN-ROCHE-2655347

PATIENT

DRUGS (3)
  1. XIAO AI PING (UNK INGREDIENTS) [Suspect]
     Active Substance: HERBALS
     Indication: NASOPHARYNGEAL CANCER
     Route: 065
  2. CISPLATIN. [Suspect]
     Active Substance: CISPLATIN
     Indication: NASOPHARYNGEAL CANCER
     Route: 065
  3. CAPECITABINE. [Suspect]
     Active Substance: CAPECITABINE
     Indication: NASOPHARYNGEAL CANCER
     Route: 048

REACTIONS (4)
  - Transaminases increased [Unknown]
  - Rash [Unknown]
  - Gastrointestinal disorder [Unknown]
  - Myelosuppression [Unknown]
